FAERS Safety Report 5504521-X (Version None)
Quarter: 2007Q4

REPORT INFORMATION
  Report Type: 
  Country: None (occurrence: None)
  Receive Date: 20071030
  Receipt Date: 20071015
  Transmission Date: 20080405
  Serious: Yes (Hospitalization)
  Sender: FDA-Public Use
  Company Number: S07-GER-05056-01

PATIENT
  Age: 69 Year
  Sex: Female

DRUGS (6)
  1. ESCITALOPRAM [Suspect]
     Indication: PANIC DISORDER
     Dosage: 5 MG QD PO
     Route: 048
     Dates: start: 20070808, end: 20070817
  2. RAMIPRIL [Suspect]
  3. SORTIS (ATORVASTATIN0 [Concomitant]
  4. CONCOR 5 PLUS (BISELECT) [Concomitant]
  5. ALLOPURINOL [Concomitant]
  6. LORAZEPAM [Concomitant]

REACTIONS (5)
  - HIGH DENSITY LIPOPROTEIN DECREASED [None]
  - LEFT VENTRICULAR DYSFUNCTION [None]
  - STRESS CARDIOMYOPATHY [None]
  - TROPONIN INCREASED [None]
  - VASCULAR PSEUDOANEURYSM [None]
